FAERS Safety Report 24928365 (Version 1)
Quarter: 2025Q1

REPORT INFORMATION
  Report Type: Spontaneous
  Country: US (occurrence: None)
  Receive Date: 20250204
  Receipt Date: 20250204
  Transmission Date: 20250409
  Serious: Yes (Disabling)
  Sender: FDA-CTU
  Company Number: None

PATIENT
  Age: 49 Year
  Sex: Female
  Weight: 56.25 kg

DRUGS (4)
  1. LEVAQUIN [Suspect]
     Active Substance: LEVOFLOXACIN
     Indication: Pneumonia
     Dates: start: 20240617, end: 20240620
  2. LISINOPRIL [Suspect]
     Active Substance: LISINOPRIL
  3. AMLODIPINE [Suspect]
     Active Substance: AMLODIPINE BESYLATE
  4. CLARITIN [Suspect]
     Active Substance: LORATADINE

REACTIONS (4)
  - Hallucination [None]
  - Paranoia [None]
  - Intrusive thoughts [None]
  - Stereotypy [None]

NARRATIVE: CASE EVENT DATE: 20240618
